FAERS Safety Report 4949271-3 (Version None)
Quarter: 2006Q1

REPORT INFORMATION
  Report Type: 
  Country: None (occurrence: None)
  Receive Date: 20060315
  Receipt Date: 20060302
  Transmission Date: 20060701
  Serious: Yes (Other)
  Sender: FDA-Public Use
  Company Number: 2006033383

PATIENT
  Sex: Male
  Weight: 77.5651 kg

DRUGS (12)
  1. VIAGRA [Suspect]
     Indication: ERECTILE DYSFUNCTION
     Dosage: 25 MG (25 MG)
  2. ASPIRIN [Concomitant]
  3. ZINC (ZINC) [Concomitant]
  4. MULTIVITAMIN [Concomitant]
  5. SAW PALMETTO (SAW PALMETTO) [Concomitant]
  6. CRANBERRY (VACCINIUM MACROCARPON) [Concomitant]
  7. FOLIC ACID [Concomitant]
  8. VITAMIN C (VITAMIN C) [Concomitant]
  9. CHONDROITIN/GLUCOSAMINE (CHONDROITIN, GLUCOSAMINE) [Concomitant]
  10. SLOW-MAG (MAGNESIUM CHLORIDE ANHYDROUS) [Concomitant]
  11. COENZYME Q10 [Concomitant]
  12. BETACAROTENE (BETACAROTENE) [Concomitant]

REACTIONS (6)
  - ATRIAL FIBRILLATION [None]
  - CONDITION AGGRAVATED [None]
  - DRUG INEFFECTIVE [None]
  - HEADACHE [None]
  - LOSS OF EMPLOYMENT [None]
  - NASAL CONGESTION [None]
